FAERS Safety Report 5005548-7 (Version None)
Quarter: 2006Q2

REPORT INFORMATION
  Report Type: 
  Country: None (occurrence: None)
  Receive Date: 20060518
  Receipt Date: 20060517
  Transmission Date: 20061013
  Serious: Yes (Other)
  Sender: FDA-Public Use
  Company Number: US-GLAXOSMITHKLINE-A0606019A

PATIENT
  Sex: Male

DRUGS (1)
  1. STANBACK HEADACHE POWDER [Suspect]
     Indication: HEADACHE

REACTIONS (1)
  - DEPENDENCE [None]
